FAERS Safety Report 12596335 (Version 1)
Quarter: 2016Q3

REPORT INFORMATION
  Report Type: Report from Study
  Country: US (occurrence: US)
  Receive Date: 20160727
  Receipt Date: 20160727
  Transmission Date: 20161109
  Serious: Yes (Hospitalization, Other)
  Sender: FDA-Public Use
  Company Number: US-AMGEN-USASL2016095942

PATIENT
  Age: 64 Year
  Sex: Male

DRUGS (3)
  1. ENBREL [Suspect]
     Active Substance: ETANERCEPT
     Indication: PSORIASIS
  2. ENBREL [Suspect]
     Active Substance: ETANERCEPT
     Indication: ANKYLOSING SPONDYLITIS
  3. ENBREL [Suspect]
     Active Substance: ETANERCEPT
     Indication: PSORIATIC ARTHROPATHY
     Dosage: 50 MG, QWK
     Route: 065

REACTIONS (13)
  - Loss of consciousness [Recovered/Resolved]
  - Internal haemorrhage [Unknown]
  - Sternal fracture [Unknown]
  - Pain [Not Recovered/Not Resolved]
  - Vascular rupture [Recovered/Resolved]
  - Psoriasis [Not Recovered/Not Resolved]
  - Rib fracture [Unknown]
  - Road traffic accident [Unknown]
  - Pulmonary embolism [Unknown]
  - Abdominal discomfort [Unknown]
  - Splenectomy [Recovered/Resolved]
  - Pain in extremity [Not Recovered/Not Resolved]
  - Corrective lens user [Unknown]

NARRATIVE: CASE EVENT DATE: 2016
